FAERS Safety Report 21690251 (Version 1)
Quarter: 2022Q4

REPORT INFORMATION
  Report Type: Spontaneous
  Country: US (occurrence: US)
  Receive Date: 20221206
  Receipt Date: 20221206
  Transmission Date: 20230113
  Serious: No
  Sender: FDA-Public Use
  Company Number: US-BRAINTREE LABORATORIES, INC.-2022BTE00699

PATIENT
  Age: 72 Year
  Sex: Female
  Weight: 69.841 kg

DRUGS (6)
  1. SUTAB [Suspect]
     Active Substance: MAGNESIUM SULFATE\POTASSIUM CHLORIDE\SODIUM SULFATE
     Indication: Colonoscopy
     Dosage: 1 X 12 TABLETS, 1X
     Route: 048
     Dates: start: 20220811
  2. ATENOLOL [Concomitant]
     Active Substance: ATENOLOL
     Dosage: 50 MG, 2X/DAY
  3. AMLODIPINE [Concomitant]
     Active Substance: AMLODIPINE BESYLATE
     Dosage: UNK, 1X/DAY
  4. OMEPRAZOLE [Concomitant]
     Active Substance: OMEPRAZOLE
     Dosage: 40 MG
  5. UNSPECIFIED MEDICATION FOR BLADDER ISSUE [Concomitant]
  6. VITAMINS [Concomitant]
     Active Substance: VITAMINS

REACTIONS (2)
  - Vomiting [Recovered/Resolved]
  - Nausea [Recovering/Resolving]

NARRATIVE: CASE EVENT DATE: 20220811
